FAERS Safety Report 11580846 (Version 1)
Quarter: 2015Q4

REPORT INFORMATION
  Report Type: Report from Study
  Country: DE (occurrence: DE)
  Receive Date: 20151001
  Receipt Date: 20151001
  Transmission Date: 20160304
  Serious: Yes (Other)
  Sender: FDA-Public Use
  Company Number: DE-OCTA-GAM16415DE

PATIENT
  Age: 66 Year
  Sex: Female
  Weight: 74.4 kg

DRUGS (1)
  1. OCTAGAM IMMUNE GLOBULIN (HUMAN) [Suspect]
     Active Substance: HUMAN IMMUNOGLOBULIN G
     Indication: SECONDARY IMMUNODEFICIENCY
     Dosage: 1ST INFUSION 28-APR-2015, 2ND INFUSION 26-MAY-2015
     Route: 042
     Dates: start: 20150428

REACTIONS (5)
  - Rash generalised [Recovering/Resolving]
  - Skin exfoliation [Recovering/Resolving]
  - Emotional distress [Not Recovered/Not Resolved]
  - Condition aggravated [Not Recovered/Not Resolved]
  - Cystitis [Unknown]

NARRATIVE: CASE EVENT DATE: 2015
